FAERS Safety Report 11561943 (Version 2)
Quarter: 2015Q4

REPORT INFORMATION
  Report Type: Report from Study
  Country: IN (occurrence: IN)
  Receive Date: 20150928
  Receipt Date: 20151006
  Transmission Date: 20160304
  Serious: Yes (Death, Other)
  Sender: FDA-Public Use
  Company Number: IN-GLAXOSMITHKLINE-IN2015GSK137726

PATIENT
  Age: 51 Year
  Sex: Female

DRUGS (1)
  1. TYKERB [Suspect]
     Active Substance: LAPATINIB DITOSYLATE
     Indication: BREAST CANCER METASTATIC
     Dosage: 250 MG, UNK
     Route: 048
     Dates: start: 20140720

REACTIONS (7)
  - Diarrhoea [Unknown]
  - Fluid retention [Unknown]
  - Fatigue [Unknown]
  - Death [Fatal]
  - Dyspnoea [Unknown]
  - Swelling [Unknown]
  - Abdominal pain upper [Unknown]
